FAERS Safety Report 9328224 (Version 2)
Quarter: 2013Q2

REPORT INFORMATION
  Report Type: Spontaneous
  Country: US (occurrence: US)
  Receive Date: 20130604
  Receipt Date: 20130604
  Transmission Date: 20140414
  Serious: No
  Sender: FDA-Public Use
  Company Number: US-MYLANLABS-2013S1004953

PATIENT
  Age: 82 Year
  Sex: Male
  Weight: 101.15 kg

DRUGS (8)
  1. PIOGLITAZONE TABLETS USP [Suspect]
     Indication: TYPE 2 DIABETES MELLITUS
     Route: 048
     Dates: start: 201301, end: 20130228
  2. ASA [Concomitant]
     Route: 048
  3. CALCIUM [Concomitant]
     Route: 048
  4. SIMVASTATIN [Concomitant]
     Indication: BLOOD CHOLESTEROL INCREASED
     Route: 048
  5. LISINOPRIL [Concomitant]
     Indication: BLOOD PRESSURE INCREASED
     Route: 048
  6. JANUVIA [Concomitant]
     Indication: DIABETES MELLITUS
     Route: 048
  7. COLACE [Concomitant]
  8. MULTIVITAMIN [Concomitant]

REACTIONS (2)
  - Oedema [Recovered/Resolved]
  - Weight increased [Not Recovered/Not Resolved]
